FAERS Safety Report 9383487 (Version 2)
Quarter: 2013Q3

REPORT INFORMATION
  Report Type: Spontaneous
  Country: US (occurrence: US)
  Receive Date: 20130704
  Receipt Date: 20130722
  Transmission Date: 20140515
  Serious: Yes (Other)
  Sender: FDA-Public Use
  Company Number: US-PFIZER INC-2013198223

PATIENT
  Age: 62 Year
  Sex: Female
  Weight: 68.03 kg

DRUGS (9)
  1. ZOSYN [Suspect]
     Indication: RESPIRATORY FAILURE
     Dosage: 10.125 G, 3X/DAY
     Dates: start: 20130129, end: 20130205
  2. ZOSYN [Interacting]
     Indication: PNEUMONIA
  3. ZOSYN [Interacting]
     Indication: HAEMOPTYSIS
  4. ZOFRAN [Interacting]
     Dosage: UNK
  5. PHENOBARBITAL [Suspect]
     Dosage: 30 MG, 3X/DAY
  6. PHENOBARBITAL [Suspect]
     Dosage: 60 MG, 4X/DAY
  7. INDERAL [Concomitant]
     Indication: TACHYCARDIA
     Dosage: 30 MG, 3X/DAY
     Dates: end: 2013
  8. INDERAL [Concomitant]
     Dosage: 60 MG, 4X/DAY
  9. CIPROFLOXACIN [Concomitant]
     Dosage: UNK
     Dates: start: 201301

REACTIONS (22)
  - Respiratory failure [Unknown]
  - Pneumonia [Unknown]
  - Incorrect drug administration rate [Unknown]
  - Vision blurred [Unknown]
  - Pyrexia [Recovering/Resolving]
  - Chills [Recovering/Resolving]
  - Swelling face [Recovering/Resolving]
  - Eye swelling [Recovering/Resolving]
  - Local swelling [Recovering/Resolving]
  - Hypotension [Unknown]
  - Dyspnoea [Recovering/Resolving]
  - Oxygen saturation decreased [Unknown]
  - Heart rate decreased [Unknown]
  - Haemoptysis [Unknown]
  - Pollakiuria [Recovering/Resolving]
  - International normalised ratio increased [Unknown]
  - Protein total decreased [Unknown]
  - Protein urine present [Unknown]
  - Feeling abnormal [Unknown]
  - Malaise [Unknown]
  - Drug interaction [Unknown]
  - Muscle spasms [Unknown]
